FAERS Safety Report 6428840-8 (Version None)
Quarter: 2009Q4

REPORT INFORMATION
  Report Type: 
  Country: None (occurrence: None)
  Receive Date: 20091102
  Receipt Date: 20091020
  Transmission Date: 20100525
  Serious: Yes (Other)
  Sender: FDA-Public Use
  Company Number: CERZ-1000925

PATIENT
  Age: 68 Year
  Sex: Male

DRUGS (2)
  1. CEREZYME [Suspect]
     Indication: GAUCHER'S DISEASE
     Dosage: 1400 U, Q2W, INTRAVENOUS
     Route: 042
     Dates: start: 19971209, end: 20090701
  2. CEREZYME [Suspect]

REACTIONS (2)
  - BONE PAIN [None]
  - INAPPROPRIATE SCHEDULE OF DRUG ADMINISTRATION [None]
